FAERS Safety Report 9575940 (Version 1)
Quarter: 2013Q4

REPORT INFORMATION
  Report Type: Spontaneous
  Country: US (occurrence: US)
  Receive Date: 20131001
  Receipt Date: 20131001
  Transmission Date: 20140711
  Serious: No
  Sender: FDA-Public Use
  Company Number: US-AMGEN-USASP2013000712

PATIENT
  Age: 57 Year
  Sex: Female

DRUGS (1)
  1. ENBREL [Suspect]
     Indication: RHEUMATOID ARTHRITIS
     Dosage: 50 MG ONCE EVERY 2 OR 3 WEEKS DUE TO COST
     Dates: start: 20070617

REACTIONS (6)
  - Skin swelling [Recovered/Resolved]
  - Eczema [Recovered/Resolved]
  - Hyperkeratosis [Recovered/Resolved]
  - Scar [Recovered/Resolved]
  - Skin discolouration [Recovered/Resolved]
  - Erythema [Recovered/Resolved]
